FAERS Safety Report 6931591-4 (Version None)
Quarter: 2010Q3

REPORT INFORMATION
  Report Type: 
  Country: None (occurrence: None)
  Receive Date: 20100819
  Receipt Date: 20100813
  Transmission Date: 20110219
  Serious: Yes (Hospitalization, Other)
  Sender: FDA-Public Use
  Company Number: JP-SANOFI-AVENTIS-2010SA041445

PATIENT
  Age: 88 Year
  Sex: Female
  Weight: 51.4 kg

DRUGS (9)
  1. ALLEGRA [Suspect]
     Indication: RHINITIS
     Route: 048
     Dates: start: 20100105, end: 20100622
  2. ALLEGRA [Suspect]
     Indication: SINUSITIS
     Route: 048
     Dates: start: 20100105, end: 20100622
  3. TAKEPRON [Concomitant]
     Indication: HYPERTENSION
     Route: 048
  4. MICARDIS [Concomitant]
     Indication: HYPERTENSION
     Route: 048
  5. NORVASC [Concomitant]
     Indication: HYPERTENSION
     Route: 048
  6. ONON [Concomitant]
     Route: 048
  7. VASOLAN [Concomitant]
     Indication: ARRHYTHMIA
     Route: 048
  8. MUCOSOLVAN [Concomitant]
     Route: 048
  9. TULOBUTEROL [Concomitant]
     Route: 062

REACTIONS (3)
  - EOSINOPHILIA [None]
  - RASH [None]
  - VOMITING [None]
